FAERS Safety Report 8539980-1 (Version None)
Quarter: 2012Q3

REPORT INFORMATION
  Report Type: 
  Country: None (occurrence: None)
  Receive Date: 20120726
  Receipt Date: 20120720
  Transmission Date: 20120928
  Serious: Yes (Hospitalization)
  Sender: FDA-Public Use
  Company Number: PHHY2012FR063191

PATIENT
  Sex: Male

DRUGS (7)
  1. FLUDARABINE PHOSPHATE [Suspect]
     Dosage: 30 MG/M2, QD
     Route: 042
     Dates: start: 20120512, end: 20120515
  2. CYTARABINE [Suspect]
     Dosage: 1 DF, BID
     Route: 042
     Dates: start: 20120512, end: 20120515
  3. GRANOCYTE [Concomitant]
     Dates: start: 20120512, end: 20120515
  4. AMSALYO [Suspect]
     Dosage: 100 MG/M2, QD
     Route: 042
     Dates: start: 20120512, end: 20120515
  5. CYCLOPHOSPHAMIDE [Suspect]
     Dosage: 4800 MG
     Route: 042
     Dates: start: 20120519, end: 20120519
  6. BUSULFAN [Suspect]
     Dosage: 64 MG, UNK
     Route: 042
     Dates: start: 20120520, end: 20120521
  7. THYMOGLOBULIN [Suspect]
     Route: 042
     Dates: start: 20120522, end: 20120524

REACTIONS (5)
  - VENOOCCLUSIVE DISEASE [None]
  - CHOLESTASIS [None]
  - ABDOMINAL PAIN [None]
  - GENERALISED OEDEMA [None]
  - HEPATIC FAILURE [None]
